FAERS Safety Report 21872941 (Version 2)
Quarter: 2023Q1

REPORT INFORMATION
  Report Type: Spontaneous
  Country: BE (occurrence: BE)
  Receive Date: 20230117
  Receipt Date: 20230215
  Transmission Date: 20230418
  Serious: Yes (Life-Threatening, Hospitalization)
  Sender: FDA-Public Use
  Company Number: BE-MYLANLABS-2023M1004775

PATIENT
  Age: 61 Year
  Sex: Male
  Weight: 88 kg

DRUGS (4)
  1. MOXIFLOXACIN [Suspect]
     Active Substance: MOXIFLOXACIN
     Indication: Serratia infection
     Dosage: 400 MILLIGRAM, QD
     Route: 042
     Dates: start: 20210321, end: 20210325
  2. MOXIFLOXACIN [Suspect]
     Active Substance: MOXIFLOXACIN
     Indication: Streptococcus test positive
  3. METHYLPREDNISOLONE [Concomitant]
     Active Substance: METHYLPREDNISOLONE
     Indication: COVID-19
     Dosage: 40 MILLIGRAM, BID; INTRAVENOUS (NOT SPECIFIED)
     Route: 042
     Dates: start: 20210321, end: 20210409
  4. PIPERACILLIN AND TAZOBACTAM [Concomitant]
     Active Substance: PIPERACILLIN SODIUM\TAZOBACTAM SODIUM
     Indication: Evidence based treatment
     Dosage: 4 GRAM, QID
     Route: 042
     Dates: start: 20210321, end: 20210327

REACTIONS (1)
  - Drug ineffective [Unknown]
